FAERS Safety Report 8445451-3 (Version None)
Quarter: 2012Q2

REPORT INFORMATION
  Report Type: 
  Country: None (occurrence: None)
  Receive Date: 20120618
  Receipt Date: 20120614
  Transmission Date: 20120825
  Serious: No
  Sender: FDA-Public Use
  Company Number: US-TEVA-343328USA

PATIENT
  Sex: Female
  Weight: 67.192 kg

DRUGS (4)
  1. BUSPIRONE HCL [Concomitant]
     Dosage: 45 MILLIGRAM;
     Route: 048
  2. BUPROPION HCL [Concomitant]
     Dosage: 300 MILLIGRAM;
     Route: 048
  3. PROAIR HFA [Suspect]
     Indication: CHRONIC OBSTRUCTIVE PULMONARY DISEASE
     Dosage: 360 MICROGRAM; 8 PUFFS
     Route: 055
     Dates: start: 20110101, end: 20120601
  4. CYCLOBENZAPRINE HCL [Concomitant]
     Dosage: 30 MILLIGRAM;
     Route: 048

REACTIONS (3)
  - CHEST PAIN [None]
  - BACK PAIN [None]
  - PULMONARY CONGESTION [None]
